FAERS Safety Report 7511781-2 (Version None)
Quarter: 2011Q2

REPORT INFORMATION
  Report Type: 
  Country: None (occurrence: None)
  Receive Date: 20110519
  Receipt Date: 20110510
  Transmission Date: 20111010
  Serious: Yes (Hospitalization)
  Sender: FDA-Public Use
  Company Number: DSJ-2011-08039

PATIENT
  Age: 68 Year
  Sex: Male
  Weight: 75 kg

DRUGS (9)
  1. MECOBALAMIN [Concomitant]
  2. TERNELIN (TIZANIDINE HYDROCHLORIDE) [Concomitant]
  3. JUVELA (TOCOPHERYL ACETATE) [Concomitant]
  4. CELECOXIB [Concomitant]
  5. OLMESARTAN MEDOXOMIL [Suspect]
     Indication: HYPERTENSION
     Dosage: 20 MG (20 MG, 1 IN 1 D), PER ORAL; 10 MG (10 MG, 1 IN 1 D), PER ORAL
     Route: 048
     Dates: start: 20090227, end: 20100309
  6. OLMESARTAN MEDOXOMIL [Suspect]
     Indication: HYPERTENSION
     Dosage: 20 MG (20 MG, 1 IN 1 D), PER ORAL; 10 MG (10 MG, 1 IN 1 D), PER ORAL
     Route: 048
     Dates: start: 20100310, end: 20100906
  7. AMARYL [Concomitant]
  8. PRORENAL (LIMAPROST) [Concomitant]
  9. METFORMIN HYDROCHLORIDE [Concomitant]

REACTIONS (11)
  - HYPOTENSION [None]
  - BLOOD PRESSURE DECREASED [None]
  - RENAL IMPAIRMENT [None]
  - HYPERKALAEMIA [None]
  - DEHYDRATION [None]
  - DECREASED APPETITE [None]
  - DIZZINESS [None]
  - METABOLIC ACIDOSIS [None]
  - HEART RATE DECREASED [None]
  - WEIGHT DECREASED [None]
  - DIABETES MELLITUS INADEQUATE CONTROL [None]
